FAERS Safety Report 23098061 (Version 2)
Quarter: 2024Q2

REPORT INFORMATION
  Report Type: Report from Study
  Country: US (occurrence: US)
  Receive Date: 20231023
  Receipt Date: 20240621
  Transmission Date: 20240715
  Serious: Yes (Other)
  Sender: FDA-Public Use
  Company Number: US-ABBVIE-22K-163-4465069-00

PATIENT
  Age: 61 Year
  Sex: Female
  Weight: 80.739 kg

DRUGS (18)
  1. HUMIRA [Suspect]
     Active Substance: ADALIMUMAB
     Indication: Psoriatic arthropathy
     Dosage: FORM STRENGTH UNITS 40 MILLIGRAM CITRATE FREE
     Route: 058
     Dates: start: 20220201, end: 20220809
  2. HUMIRA [Suspect]
     Active Substance: ADALIMUMAB
     Indication: Psoriasis
  3. OTEZLA [Concomitant]
     Active Substance: APREMILAST
     Indication: Psoriatic arthropathy
  4. METFORMIN [Concomitant]
     Active Substance: METFORMIN HYDROCHLORIDE
     Indication: Type 2 diabetes mellitus
  5. COVID-19 vaccine [Concomitant]
     Indication: Immunisation
     Dosage: PFIZER
     Route: 030
     Dates: start: 20211001, end: 20211001
  6. COVID-19 vaccine [Concomitant]
     Indication: Immunisation
     Dosage: PFIZER
     Route: 030
     Dates: start: 20220601, end: 20220601
  7. COVID-19 vaccine [Concomitant]
     Indication: Immunisation
     Dosage: PFIZER
     Route: 030
     Dates: start: 20210122, end: 20210122
  8. COVID-19 vaccine [Concomitant]
     Indication: Immunisation
     Dosage: PFIZER
     Route: 030
     Dates: start: 20210212, end: 20210212
  9. PFIZER-BIONTECH COVID-19 VACCINE [Concomitant]
     Active Substance: TOZINAMERAN
     Indication: COVID-19 immunisation
     Dosage: TIME INTERVAL: 1 TOTAL: FIRST DOSE
     Route: 030
     Dates: start: 20210122, end: 20210122
  10. PFIZER-BIONTECH COVID-19 VACCINE [Concomitant]
     Active Substance: TOZINAMERAN
     Indication: COVID-19 immunisation
     Dosage: TIME INTERVAL: 1 TOTAL: SECOND DOSE
     Route: 030
     Dates: start: 20210212, end: 20210212
  11. PFIZER-BIONTECH COVID-19 VACCINE [Concomitant]
     Active Substance: TOZINAMERAN
     Indication: COVID-19 immunisation
     Dosage: TIME INTERVAL: 1 TOTAL: FIRST BOOSTER DOSE
     Route: 030
     Dates: start: 20211001, end: 20211001
  12. PFIZER-BIONTECH COVID-19 VACCINE [Concomitant]
     Active Substance: TOZINAMERAN
     Indication: COVID-19 immunisation
     Dosage: TIME INTERVAL: 1 TOTAL: SECOND BOOSTER DOSE
     Route: 030
     Dates: start: 20220601, end: 20220601
  13. JARDIANCE [Concomitant]
     Active Substance: EMPAGLIFLOZIN
     Indication: Type 2 diabetes mellitus
  14. SINGULAIR [Concomitant]
     Active Substance: MONTELUKAST SODIUM
     Indication: Hypersensitivity
  15. GABAPENTIN [Concomitant]
     Active Substance: GABAPENTIN
     Indication: Neuralgia
  16. LISINOPRIL [Concomitant]
     Active Substance: LISINOPRIL
     Indication: Renal disorder prophylaxis
  17. ICOSAPENT ETHYL [Concomitant]
     Active Substance: ICOSAPENT ETHYL
     Indication: Blood cholesterol
  18. SIMVASTATIN [Concomitant]
     Active Substance: SIMVASTATIN
     Indication: Blood cholesterol increased

REACTIONS (3)
  - Breast cancer female [Not Recovered/Not Resolved]
  - Triple negative breast cancer [Recovered/Resolved]
  - Lymphadenectomy [Unknown]

NARRATIVE: CASE EVENT DATE: 20220701
